FAERS Safety Report 9601232 (Version 2)
Quarter: 2013Q4

REPORT INFORMATION
  Report Type: Spontaneous
  Country: GB (occurrence: GB)
  Receive Date: 20131005
  Receipt Date: 20131005
  Transmission Date: 20140711
  Serious: Yes (Hospitalization, Other)
  Sender: FDA-Public Use
  Company Number: GB-TEVA-434094ISR

PATIENT
  Age: 40 Year
  Sex: Female

DRUGS (2)
  1. COPAXONE [Suspect]
     Indication: MULTIPLE SCLEROSIS
     Dosage: 20 MILLIGRAM DAILY;
     Route: 058
     Dates: start: 20130815
  2. METHYLPREDNISOLONE [Suspect]
     Indication: MULTIPLE SCLEROSIS RELAPSE
     Dosage: PRESCRIBED A 5 DAY COURSE OF STEROIDS
     Route: 065

REACTIONS (6)
  - Multiple sclerosis relapse [Unknown]
  - Tongue injury [Recovered/Resolved]
  - Swollen tongue [Recovered/Resolved]
  - Swollen tongue [Recovered/Resolved]
  - Hypoaesthesia [Unknown]
  - Hypoaesthesia [Unknown]
